FAERS Safety Report 5507373-7 (Version None)
Quarter: 2007Q4

REPORT INFORMATION
  Report Type: 
  Country: None (occurrence: None)
  Receive Date: 20071106
  Receipt Date: 20071025
  Transmission Date: 20080405
  Serious: Yes (Hospitalization, Other)
  Sender: FDA-Public Use
  Company Number: HQWYE131913SEP07

PATIENT
  Sex: Male

DRUGS (11)
  1. SIROLIMUS [Suspect]
     Indication: PROPHYLAXIS AGAINST TRANSPLANT REJECTION
     Route: 048
     Dates: start: 20070725
  2. THYROXIN [Concomitant]
     Route: 048
     Dates: start: 19951228
  3. DILTIAZEM [Concomitant]
     Indication: BLOOD PRESSURE
     Route: 048
     Dates: start: 19960313
  4. PANTOPRAZOLE SODIUM [Concomitant]
     Indication: GASTROOESOPHAGEAL REFLUX DISEASE
     Route: 048
     Dates: start: 20020603
  5. ALLOPURINOL [Concomitant]
     Indication: GOUT
     Route: 048
     Dates: start: 20070514
  6. CITALOPRAM HYDROBROMIDE [Concomitant]
     Indication: DEPRESSION
     Route: 048
     Dates: start: 20030804
  7. IRBESARTAN [Concomitant]
     Indication: BLOOD PRESSURE
     Route: 048
     Dates: start: 20061106
  8. MYCOPHENOLATE MOFETIL [Concomitant]
     Indication: PROPHYLAXIS AGAINST TRANSPLANT REJECTION
     Route: 048
     Dates: start: 20070822
  9. FUROSEMIDE [Concomitant]
     Indication: DIURETIC THERAPY
     Route: 048
     Dates: start: 20020617
  10. PREDNISOLONE [Concomitant]
     Indication: PROPHYLAXIS AGAINST TRANSPLANT REJECTION
     Route: 048
     Dates: start: 20070819
  11. SIMVASTATIN [Concomitant]
     Indication: HYPERCHOLESTEROLAEMIA
     Route: 048
     Dates: start: 20020715

REACTIONS (1)
  - LEFT VENTRICULAR FAILURE [None]
